FAERS Safety Report 8273653-8 (Version None)
Quarter: 2012Q2

REPORT INFORMATION
  Report Type: 
  Country: None (occurrence: None)
  Receive Date: 20120411
  Receipt Date: 20120313
  Transmission Date: 20120825
  Serious: No
  Sender: FDA-Public Use
  Company Number: US-TEVA-323816USA

PATIENT
  Age: 50 Year
  Sex: Female

DRUGS (10)
  1. ESCITALOPRAM OXALATE [Concomitant]
  2. GABAPENTIN [Concomitant]
  3. LORAZEPAM [Concomitant]
  4. NUVIGIL [Suspect]
     Dosage: 250 MILLIGRAM;
     Route: 048
  5. ARIPIPRAZOLE [Concomitant]
  6. PROCATEROL HCL [Concomitant]
  7. VICODIN [Concomitant]
  8. OMEPRAZOLE [Concomitant]
  9. METFORMIN HCL [Concomitant]
  10. MONTELUKAST [Concomitant]

REACTIONS (2)
  - PARAESTHESIA ORAL [None]
  - SWOLLEN TONGUE [None]
